FAERS Safety Report 5390714-1 (Version None)
Quarter: 2007Q3

REPORT INFORMATION
  Report Type: 
  Country: None (occurrence: None)
  Receive Date: 20070716
  Receipt Date: 20060529
  Transmission Date: 20080115
  Serious: Yes (Hospitalization)
  Sender: FDA-Public Use
  Company Number: MPS1-10538

PATIENT
  Age: 6 Year
  Sex: Male
  Weight: 21.4 kg

DRUGS (4)
  1. ALDURAZYME [Suspect]
     Indication: MUCOPOLYSACCHARIDOSIS I
     Dosage: 0.58 MG/KG; IV
     Route: 042
     Dates: start: 20050413
  2. ANTIBIOTICS [Concomitant]
  3. OXYCARAMAZEPINE [Concomitant]
  4. CLOBAZEM [Concomitant]

REACTIONS (2)
  - PNEUMONIA [None]
  - SEPSIS [None]
